FAERS Safety Report 25654564 (Version 1)
Quarter: 2025Q3

REPORT INFORMATION
  Report Type: Spontaneous
  Country: EG (occurrence: EG)
  Receive Date: 20250807
  Receipt Date: 20250807
  Transmission Date: 20251020
  Serious: Yes (Hospitalization, Other)
  Sender: HIKMA
  Company Number: EG-HIKMA PHARMACEUTICALS USA INC.-EG-H14001-25-09080

PATIENT
  Age: 38 Year
  Sex: Female
  Weight: 60 kg

DRUGS (6)
  1. CARBOPLATIN [Suspect]
     Active Substance: CARBOPLATIN
     Indication: Breast cancer metastatic
     Dosage: 641 MILLIGRAM, 3W, DAY 1 (FIRST CYCLE)
     Route: 041
     Dates: start: 20250612
  2. CARBOPLATIN [Suspect]
     Active Substance: CARBOPLATIN
     Indication: Metastases to bone
  3. CARBOPLATIN [Suspect]
     Active Substance: CARBOPLATIN
     Indication: Metastases to lung
  4. PACLITAXEL [Suspect]
     Active Substance: PACLITAXEL
     Indication: Breast cancer metastatic
     Dosage: 128 MILLIGRAM, 3W, ON DAYS 1, 8, AND 15, (FIRST CYCLE)
     Route: 041
     Dates: start: 20250612
  5. PACLITAXEL [Suspect]
     Active Substance: PACLITAXEL
     Indication: Metastases to bone
  6. PACLITAXEL [Suspect]
     Active Substance: PACLITAXEL
     Indication: Metastases to lung

REACTIONS (3)
  - Hepatic enzyme increased [Recovering/Resolving]
  - Vomiting [Recovered/Resolved]
  - Diarrhoea [Recovered/Resolved]

NARRATIVE: CASE EVENT DATE: 20250615
